FAERS Safety Report 7799491-8 (Version None)
Quarter: 2011Q4

REPORT INFORMATION
  Report Type: 
  Country: None (occurrence: None)
  Receive Date: 20111004
  Receipt Date: 20110924
  Transmission Date: 20120403
  Serious: Yes (Other)
  Sender: FDA-Public Use
  Company Number: DSU-2011-07183

PATIENT
  Age: 64 Year
  Sex: Male
  Weight: 71.6683 kg

DRUGS (5)
  1. BENICAR HCT [Suspect]
     Indication: HYPERTENSION
     Dosage: 40/12.5MG (QD), PER ORAL
     Route: 048
     Dates: start: 20090101, end: 20100101
  2. PRAVASTATIN [Concomitant]
  3. DIOVAN [Concomitant]
  4. BENICAR [Suspect]
     Indication: HYPERTENSION
     Dosage: 40 MG (40 MG, QD), PER ORAL
     Route: 048
     Dates: start: 20100101
  5. ASPIRIN [Concomitant]

REACTIONS (3)
  - WEIGHT DECREASED [None]
  - COELIAC DISEASE [None]
  - HYPOTENSION [None]
